FAERS Safety Report 14673436 (Version 1)
Quarter: 2018Q1

REPORT INFORMATION
  Report Type: Spontaneous
  Country: US (occurrence: US)
  Receive Date: 20180322
  Receipt Date: 20180322
  Transmission Date: 20180509
  Serious: Yes (Hospitalization, Other)
  Sender: FDA-Public Use
  Company Number: None

PATIENT
  Sex: Female

DRUGS (13)
  1. LOMOTIL [Concomitant]
     Active Substance: ATROPINE SULFATE\DIPHENOXYLATE HYDROCHLORIDE
  2. TRAMADOL. [Concomitant]
     Active Substance: TRAMADOL
  3. CYMBALTA [Concomitant]
     Active Substance: DULOXETINE HYDROCHLORIDE
  4. ELIQUIS [Concomitant]
     Active Substance: APIXABAN
  5. METOPROLOL TARTRATE. [Concomitant]
     Active Substance: METOPROLOL TARTRATE
  6. LUMIGAN [Concomitant]
     Active Substance: BIMATOPROST
  7. PEPCID [Concomitant]
     Active Substance: FAMOTIDINE
  8. MAGNESIUM [Concomitant]
     Active Substance: MAGNESIUM
  9. POTASSIUM [Concomitant]
     Active Substance: POTASSIUM
  10. LONSURF [Suspect]
     Active Substance: TIPIRACIL HYDROCHLORIDE\TRIFLURIDINE
     Indication: COLON CANCER
     Dosage: ?          OTHER FREQUENCY:BID DAYS 1-5, 8-12;?
     Route: 048
     Dates: start: 20171227
  11. CIPROFLOXACN [Concomitant]
     Active Substance: CIPROFLOXACIN
  12. CLONIDINE. [Concomitant]
     Active Substance: CLONIDINE
  13. TIMOLOL. [Concomitant]
     Active Substance: TIMOLOL

REACTIONS (6)
  - Abdominal pain [None]
  - Hypoaesthesia [None]
  - Blood magnesium decreased [None]
  - Cerebrovascular accident [None]
  - Decreased appetite [None]
  - Diarrhoea [None]
